FAERS Safety Report 23077307 (Version 2)
Quarter: 2023Q4

REPORT INFORMATION
  Report Type: Report from Study
  Country: BD (occurrence: BD)
  Receive Date: 20231018
  Receipt Date: 20231101
  Transmission Date: 20240110
  Serious: Yes (Other)
  Sender: FDA-Public Use
  Company Number: BD-002147023-NVSC2023BD221036

PATIENT
  Age: 60 Year
  Sex: Female

DRUGS (2)
  1. ENTRESTO [Suspect]
     Active Substance: SACUBITRIL\VALSARTAN
     Indication: Cardiac failure chronic
     Dosage: 0.5 DOSAGE FORM, BID (FOR 7 DAYS)
     Route: 065
     Dates: start: 20231011, end: 20231018
  2. ENTRESTO [Suspect]
     Active Substance: SACUBITRIL\VALSARTAN
     Dosage: 1 DOSAGE FORM, BID
     Route: 048
     Dates: start: 20231018

REACTIONS (8)
  - Ascites [Recovering/Resolving]
  - Ear pain [Unknown]
  - Otorrhoea [Unknown]
  - Sleep disorder [Recovering/Resolving]
  - Tension [Recovering/Resolving]
  - Stress [Recovering/Resolving]
  - Headache [Recovering/Resolving]
  - Wrong technique in product usage process [Unknown]
